FAERS Safety Report 7979251-5 (Version None)
Quarter: 2011Q4

REPORT INFORMATION
  Report Type: 
  Country: None (occurrence: None)
  Receive Date: 20111214
  Receipt Date: 20111214
  Transmission Date: 20120403
  Serious: No
  Sender: FDA-Public Use
  Company Number: None

PATIENT
  Sex: Female
  Weight: 71.667 kg

DRUGS (7)
  1. PRADAXA [Suspect]
     Indication: ATRIAL FIBRILLATION
     Dosage: 150
     Route: 048
     Dates: start: 20110524, end: 20111210
  2. SIMVASTATIN [Concomitant]
     Route: 048
  3. IMDUR [Concomitant]
     Route: 048
  4. PRADAXA [Concomitant]
     Route: 048
  5. HYDRALAZINE HCL [Concomitant]
     Route: 048
  6. METOPROLOL TARTRATE [Concomitant]
     Route: 048
  7. LASIX [Concomitant]
     Route: 048

REACTIONS (4)
  - FALL [None]
  - CEREBROVASCULAR ACCIDENT [None]
  - SUBARACHNOID HAEMORRHAGE [None]
  - LACERATION [None]
